FAERS Safety Report 6679913-6 (Version None)
Quarter: 2010Q2

REPORT INFORMATION
  Report Type: 
  Country: None (occurrence: None)
  Receive Date: 20100413
  Receipt Date: 20100401
  Transmission Date: 20101027
  Serious: Yes (Death)
  Sender: FDA-Public Use
  Company Number: NL-MEDIMMUNE-MEDI-0011015

PATIENT
  Sex: Male

DRUGS (1)
  1. SYNAGIS [Suspect]
     Route: 030
     Dates: end: 20100318

REACTIONS (3)
  - ADVERSE EVENT [None]
  - IMMUNODEFICIENCY [None]
  - RESPIRATORY TRACT INFECTION [None]
